FAERS Safety Report 23277338 (Version 1)
Quarter: 2023Q4

REPORT INFORMATION
  Report Type: Spontaneous
  Country: US (occurrence: US)
  Receive Date: 20231208
  Receipt Date: 20231208
  Transmission Date: 20240110
  Serious: No
  Sender: FDA-Public Use
  Company Number: US-PFIZER INC-202300414973

PATIENT
  Age: 54 Year
  Sex: Male
  Weight: 95.238 kg

DRUGS (1)
  1. PAXLOVID [Suspect]
     Active Substance: NIRMATRELVIR\RITONAVIR
     Indication: COVID-19 treatment
     Dosage: [NIRMATRELVIR 300 MG]/[RITONAVIR 100 MG]; 2X/DAY
     Route: 048
     Dates: start: 20231118, end: 20231123

REACTIONS (5)
  - COVID-19 [Unknown]
  - Disease recurrence [Unknown]
  - Dysgeusia [Unknown]
  - Vision blurred [Unknown]
  - Fatigue [Unknown]

NARRATIVE: CASE EVENT DATE: 20231127
